FAERS Safety Report 11545438 (Version 2)
Quarter: 2015Q4

REPORT INFORMATION
  Report Type: Report from Study
  Country: DE (occurrence: DE)
  Receive Date: 20150924
  Receipt Date: 20151013
  Transmission Date: 20160304
  Serious: Yes (Death)
  Sender: FDA-Public Use
  Company Number: DE-ACTELION-A-NJ2015-124513

PATIENT
  Age: 55 Year
  Sex: Female
  Weight: 48 kg

DRUGS (10)
  1. SPIRIVA [Concomitant]
     Active Substance: TIOTROPIUM BROMIDE MONOHYDRATE
  2. BEKFORM [Concomitant]
  3. TRACLEER [Concomitant]
     Active Substance: BOSENTAN
     Indication: PULMONARY ARTERIAL HYPERTENSION
  4. ESIDRIX [Concomitant]
     Active Substance: HYDROCHLOROTHIAZIDE
  5. RIOCIGUAT [Suspect]
     Active Substance: RIOCIGUAT
     Indication: PULMONARY ARTERIAL HYPERTENSION
     Dosage: 2.5 MG, TID
     Route: 048
  6. TORASEMID [Concomitant]
     Active Substance: TORSEMIDE
  7. XARELTO [Concomitant]
     Active Substance: RIVAROXABAN
  8. FEBUXOSTAT. [Concomitant]
     Active Substance: FEBUXOSTAT
  9. VENTAVIS [Suspect]
     Active Substance: ILOPROST
     Indication: PULMONARY ARTERIAL HYPERTENSION
     Dosage: 2.5 MCG, TID
     Route: 055
     Dates: start: 20150414, end: 20150913
  10. OXYGEN. [Concomitant]
     Active Substance: OXYGEN

REACTIONS (3)
  - Infection [Fatal]
  - Right ventricular failure [Fatal]
  - Sepsis [Fatal]
